FAERS Safety Report 24359237 (Version 1)
Quarter: 2024Q3

REPORT INFORMATION
  Report Type: Report from Study
  Country: US (occurrence: US)
  Receive Date: 20240924
  Receipt Date: 20240924
  Transmission Date: 20241017
  Serious: No
  Sender: BLUEPRINT MEDICINES
  Company Number: US-ROCHE-3541500

PATIENT

DRUGS (1)
  1. PRALSETINIB [Suspect]
     Active Substance: PRALSETINIB
     Indication: Thyroid cancer
     Dosage: TAKE 3 CAPSULE(S) BY MOUTH (300 MG TOTAL) DAILY

REACTIONS (1)
  - Gait disturbance [Unknown]
